FAERS Safety Report 7028211-X (Version None)
Quarter: 2010Q4

REPORT INFORMATION
  Report Type: 
  Country: None (occurrence: None)
  Receive Date: 20101005
  Receipt Date: 20100927
  Transmission Date: 20110411
  Serious: Yes (Other)
  Sender: FDA-Public Use
  Company Number: SE-JNJFOC-20100906868

PATIENT
  Age: 57 Year
  Sex: Female

DRUGS (10)
  1. CAELYX [Suspect]
     Indication: OVARIAN CANCER RECURRENT
     Route: 042
  2. CAELYX [Suspect]
     Dosage: 3 DOSES OUT 6 PLANNED
     Route: 042
  3. OXYCONTIN [Concomitant]
     Route: 065
  4. OXYCODONE HCL [Concomitant]
     Route: 065
  5. SIMVASTATIN [Concomitant]
     Route: 065
  6. PYRIDOXINE HCL [Concomitant]
     Route: 065
  7. INSULIN [Concomitant]
     Dosage: DOSE WAS REDUCED
  8. ALVEDON [Concomitant]
  9. ASPIRIN [Concomitant]
  10. ANTI-HYPERTENSIVE [Concomitant]

REACTIONS (1)
  - HYPOGLYCAEMIA [None]
